FAERS Safety Report 5152769-9 (Version None)
Quarter: 2006Q4

REPORT INFORMATION
  Report Type: 
  Country: None (occurrence: None)
  Receive Date: 20061109
  Receipt Date: 20061027
  Transmission Date: 20070319
  Serious: Yes (Death, Hospitalization)
  Sender: FDA-Public Use
  Company Number: 97/03122-USE

PATIENT
  Age: 66 Year
  Sex: Male

DRUGS (5)
  1. FLUDARA [Suspect]
     Indication: NON-HODGKIN'S LYMPHOMA
     Dosage: 20MG/M2/DX5DX2CYCLES, INTRAVENOUS
     Route: 042
     Dates: start: 19970718, end: 19970929
  2. PACLITAXEL [Suspect]
     Indication: NON-HODGKIN'S LYMPHOMA
     Dosage: 50 MG/M2 OVER 72 HOURS, INTRAVENOUS
     Route: 042
     Dates: start: 19970701, end: 19970901
  3. DIPHENHYDRAMINE HCL [Concomitant]
  4. PEPCID [Concomitant]
  5. DEXAMETHASONE TAB [Concomitant]

REACTIONS (1)
  - MYOCARDIAL INFARCTION [None]
